FAERS Safety Report 4945235-4 (Version None)
Quarter: 2006Q1

REPORT INFORMATION
  Report Type: 
  Country: None (occurrence: None)
  Receive Date: 20060315
  Receipt Date: 20060315
  Transmission Date: 20060701
  Serious: Yes (Other)
  Sender: FDA-Public Use
  Company Number: None

PATIENT
  Age: 46 Year
  Sex: Female
  Weight: 61.6892 kg

DRUGS (2)
  1. LEXAPRO [Suspect]
     Indication: ANXIETY
     Dosage: 10 MG DAILY PO
     Route: 048
     Dates: start: 20060210, end: 20060221
  2. LEXAPRO [Suspect]
     Indication: DEPRESSION
     Dosage: 10 MG DAILY PO
     Route: 048
     Dates: start: 20060210, end: 20060221

REACTIONS (5)
  - DIZZINESS [None]
  - EXCORIATION [None]
  - FALL [None]
  - TOOTH EROSION [None]
  - TOOTH INJURY [None]
